FAERS Safety Report 9331774 (Version 1)
Quarter: 2013Q2

REPORT INFORMATION
  Report Type: Spontaneous
  Country: US (occurrence: None)
  Receive Date: 20130603
  Receipt Date: 20130603
  Transmission Date: 20140414
  Serious: Yes (Life-Threatening, Hospitalization, Congenital Anomaly, Other)
  Sender: FDA-Public Use
  Company Number: AUR-APL-2013-04463

PATIENT
  Sex: Male
  Weight: 2.5 kg

DRUGS (6)
  1. VENLAFAXINE [Suspect]
     Indication: PRODUCT USED FOR UNKNOWN INDICATION
     Route: 064
  2. EFFEXOR (VENLAFAXINE HYDROCHLORIDE) UNKNOWN [Suspect]
     Indication: PRODUCT USED FOR UNKNOWN INDICATION
     Route: 064
  3. AUGMENTIN (AUGMENTIN /00756801/) [Concomitant]
  4. TYLENOL (PARACETAMOL) [Concomitant]
  5. AMOXICILLIN SODIUM W/CLAVULANATE POTASSIUM (AUGMENTIN /00756801/) [Concomitant]
  6. PENICILLIN G (BENZYLPENICILLIN) [Concomitant]

REACTIONS (13)
  - Fallot^s tetralogy [None]
  - Caesarean section [None]
  - Transposition of the great vessels [None]
  - Pulmonary artery stenosis congenital [None]
  - Patent ductus arteriosus [None]
  - Atrial septal defect [None]
  - Heart disease congenital [None]
  - Pulmonary hypertension [None]
  - Feeding disorder neonatal [None]
  - Respiratory depression [None]
  - Neonatal respiratory distress syndrome [None]
  - Maternal drugs affecting foetus [None]
  - Anaemia neonatal [None]
